FAERS Safety Report 23421939 (Version 1)
Quarter: 2024Q1

REPORT INFORMATION
  Report Type: Spontaneous
  Country: US (occurrence: None)
  Receive Date: 20240118
  Receipt Date: 20240118
  Transmission Date: 20240409
  Serious: Yes (Life-Threatening, Hospitalization)
  Sender: FDA-Public Use
  Company Number: None

PATIENT
  Age: 75 Year
  Sex: Male
  Weight: 78.25 kg

DRUGS (2)
  1. FERUMOXYTOL [Suspect]
     Active Substance: FERUMOXYTOL
     Dosage: OTHER FREQUENCY : ONCE;?
     Route: 041
     Dates: start: 20240118, end: 20240118
  2. SODIUM CHLORIDE [Concomitant]
     Active Substance: SODIUM CHLORIDE

REACTIONS (1)
  - Anaphylactic reaction [None]

NARRATIVE: CASE EVENT DATE: 20240118
